FAERS Safety Report 4877582-9 (Version None)
Quarter: 2006Q1

REPORT INFORMATION
  Report Type: 
  Country: None (occurrence: None)
  Receive Date: 20060111
  Receipt Date: 20060109
  Transmission Date: 20060701
  Serious: Yes (Other)
  Sender: FDA-Public Use
  Company Number: NL-GLAXOSMITHKLINE-B0405952A

PATIENT
  Age: 42 Year
  Sex: Male

DRUGS (1)
  1. AUGMENTIN '125' [Suspect]
     Indication: INFECTION
     Dates: start: 20051030

REACTIONS (11)
  - ABDOMINAL PAIN [None]
  - CHROMATURIA [None]
  - DISABILITY [None]
  - FAECES DISCOLOURED [None]
  - FATIGUE [None]
  - HEPATIC FUNCTION ABNORMAL [None]
  - INSOMNIA [None]
  - JAUNDICE [None]
  - PRURITUS GENERALISED [None]
  - WEIGHT DECREASED [None]
  - YELLOW SKIN [None]
